FAERS Safety Report 5721906-7 (Version None)
Quarter: 2008Q2

REPORT INFORMATION
  Report Type: 
  Country: None (occurrence: None)
  Receive Date: 20080429
  Receipt Date: 20080421
  Transmission Date: 20081010
  Serious: Yes (Hospitalization)
  Sender: FDA-Public Use
  Company Number: DE-PFIZER INC-2007103707

PATIENT
  Sex: Female
  Weight: 52 kg

DRUGS (5)
  1. AZULFIDINE EN-TABS [Suspect]
     Indication: CROHN'S DISEASE
     Route: 048
     Dates: start: 20071108, end: 20071120
  2. METOPROLOL SUCCINATE [Concomitant]
  3. OPHTHALMOLOGICALS [Concomitant]
  4. ACETAMINOPHEN [Concomitant]
  5. MESALAMINE [Concomitant]

REACTIONS (3)
  - CROHN'S DISEASE [None]
  - HAEMORRHOIDS [None]
  - SKIN DISORDER [None]
